FAERS Safety Report 7229812-6 (Version None)
Quarter: 2011Q1

REPORT INFORMATION
  Report Type: 
  Country: None (occurrence: None)
  Receive Date: 20110117
  Receipt Date: 20110106
  Transmission Date: 20110831
  Serious: Yes (Hospitalization, Other)
  Sender: FDA-Public Use
  Company Number: PHHO2010BE19702

PATIENT
  Sex: Male
  Weight: 19.8 kg

DRUGS (9)
  1. PLACEBO [Suspect]
     Indication: JUVENILE ARTHRITIS
     Dosage: NO TREATMENT
  2. INDOCIN [Concomitant]
     Dosage: UNK
     Dates: end: 20101225
  3. MEDROL [Concomitant]
  4. ACZ885 [Suspect]
     Dosage: 79.2 MG, ONCE/SINGLE
     Dates: start: 20101222
  5. BLINDED ACZ885 [Suspect]
     Indication: JUVENILE ARTHRITIS
     Dosage: NO TREATMENT
  6. BLINDED NO TREATMENT RECEIVED [Suspect]
     Indication: JUVENILE ARTHRITIS
     Dosage: NO TREATMENT
  7. OMEPRAZOLE [Concomitant]
  8. LAXATIVES [Suspect]
  9. ACZ885 [Suspect]
     Indication: JUVENILE ARTHRITIS
     Dosage: 77.2 MG, ONCE/SINGLE
     Dates: start: 20101124

REACTIONS (12)
  - MALAISE [None]
  - INJECTION SITE REACTION [None]
  - ERYTHEMA [None]
  - PAIN [None]
  - PYREXIA [None]
  - GASTRITIS [None]
  - FATIGUE [None]
  - HEPATIC ENZYME INCREASED [None]
  - ABDOMINAL PAIN UPPER [None]
  - INFLAMMATION [None]
  - SWELLING [None]
  - ABNORMAL FAECES [None]
